FAERS Safety Report 10102126 (Version 1)
Quarter: 2014Q2

REPORT INFORMATION
  Report Type: Spontaneous
  Country: US (occurrence: None)
  Receive Date: 20140423
  Receipt Date: 20140423
  Transmission Date: 20141212
  Serious: Yes (Other)
  Sender: FDA-Public Use
  Company Number: None

PATIENT
  Sex: Female

DRUGS (9)
  1. IMBRUVICA [Suspect]
     Indication: CHRONIC LYMPHOCYTIC LEUKAEMIA
     Route: 048
     Dates: start: 20140327
  2. OMEPRAZOLE [Concomitant]
  3. ATORVASTATIN [Concomitant]
  4. ADVAIR [Concomitant]
  5. HFA230-21MCG [Concomitant]
  6. SODIUM CHLORIDE 3% NEBULIZED [Concomitant]
  7. PROVENTIL [Concomitant]
  8. MULTIVITAMIN [Concomitant]
  9. CALCIUM [Concomitant]

REACTIONS (1)
  - Heart rate increased [None]
